FAERS Safety Report 8397037-7 (Version None)
Quarter: 2012Q2

REPORT INFORMATION
  Report Type: 
  Country: None (occurrence: None)
  Receive Date: 20120530
  Receipt Date: 20120523
  Transmission Date: 20120825
  Serious: No
  Sender: FDA-Public Use
  Company Number: US-BAYER-2012-052801

PATIENT
  Sex: Male

DRUGS (4)
  1. ALEVE (CAPLET) [Suspect]
     Indication: NECK PAIN
  2. IBUPROFEN (ADVIL) [Concomitant]
     Indication: NECK PAIN
  3. ALEVE (CAPLET) [Suspect]
     Indication: MUSCULOSKELETAL STIFFNESS
  4. IBUPROFEN (ADVIL) [Concomitant]
     Indication: MUSCULOSKELETAL STIFFNESS

REACTIONS (2)
  - NECK PAIN [None]
  - MUSCULOSKELETAL STIFFNESS [None]
